FAERS Safety Report 7289711-0 (Version None)
Quarter: 2011Q1

REPORT INFORMATION
  Report Type: 
  Country: None (occurrence: None)
  Receive Date: 20110214
  Receipt Date: 20110131
  Transmission Date: 20110831
  Serious: No
  Sender: FDA-Public Use
  Company Number: US-BIOGENIDEC-2011BI001213

PATIENT
  Age: 44 Year
  Sex: Female

DRUGS (2)
  1. TYSABRI [Suspect]
     Indication: MULTIPLE SCLEROSIS
     Route: 042
     Dates: start: 20100902
  2. TYSABRI [Suspect]
     Route: 042
     Dates: start: 20090518, end: 20090917

REACTIONS (5)
  - BLOOD POTASSIUM DECREASED [None]
  - PALPITATIONS [None]
  - CHEST PAIN [None]
  - FALL [None]
  - DYSPNOEA [None]
